FAERS Safety Report 18044790 (Version 1)
Quarter: 2020Q3

REPORT INFORMATION
  Report Type: Spontaneous
  Country: AU (occurrence: AU)
  Receive Date: 20200720
  Receipt Date: 20200720
  Transmission Date: 20201103
  Serious: Yes (Hospitalization, Other)
  Sender: FDA-Public Use
  Company Number: AU-MAYNE PHARMA-2020MYN000372

PATIENT

DRUGS (3)
  1. BETAMETHASONE DIPROPRIONATE [Concomitant]
     Active Substance: BETAMETHASONE DIPROPIONATE
     Indication: HIGH RISK PREGNANCY
     Dosage: UNK
     Route: 065
  2. BENZYLPENICILLIN SODIUM [Suspect]
     Active Substance: PENICILLIN G SODIUM
     Indication: PROPHYLAXIS
     Dosage: UNK
     Route: 048
  3. ERYTHROMYCIN. [Suspect]
     Active Substance: ERYTHROMYCIN
     Indication: PROPHYLAXIS
     Dosage: UNK
     Route: 048

REACTIONS (6)
  - Pyrexia [Recovered/Resolved]
  - Pseudomembranous colitis [Recovered/Resolved]
  - Postpartum sepsis [Recovered/Resolved]
  - Abdominal discomfort [Recovered/Resolved]
  - Exposure during pregnancy [Unknown]
  - Abdominal infection [Recovered/Resolved]
